FAERS Safety Report 4380374-0 (Version None)
Quarter: 2004Q2

REPORT INFORMATION
  Report Type: 
  Country: None (occurrence: None)
  Receive Date: 20040614
  Receipt Date: 20040505
  Transmission Date: 20050107
  Serious: Yes (Death, Other)
  Sender: FDA-Public Use
  Company Number: 2004026152

PATIENT
  Age: 13 Year
  Sex: Male
  Weight: 30 kg

DRUGS (5)
  1. VFEND [Suspect]
     Indication: ILL-DEFINED DISORDER
     Dosage: 240 MG (120 MG, 2 IN 1 D), INTRAVENOUS
     Route: 042
     Dates: start: 20040401
  2. VANCOMYCIN [Concomitant]
  3. MEROPENEM (MEROPENEM) [Concomitant]
  4. GRANULOCYTE COLONY  STIMULATING FACTOR (GRANULOCYTE COLONY STIMULATING [Concomitant]
  5. NOREPINEPHRINE (NOREPINEPHRINE) [Concomitant]

REACTIONS (4)
  - CARDIAC DISORDER [None]
  - DISEASE PROGRESSION [None]
  - HYPOTENSION [None]
  - SEPSIS [None]
